FAERS Safety Report 6945712-0 (Version None)
Quarter: 2010Q3

REPORT INFORMATION
  Report Type: 
  Country: None (occurrence: None)
  Receive Date: 20100827
  Receipt Date: 20100820
  Transmission Date: 20110219
  Serious: Yes (Hospitalization)
  Sender: FDA-Public Use
  Company Number: A0797800A

PATIENT
  Sex: Female

DRUGS (1)
  1. AVANDIA [Suspect]
     Indication: DIABETES MELLITUS
     Dosage: 4MG PER DAY
     Route: 048
     Dates: end: 20070607

REACTIONS (6)
  - DYSPNOEA [None]
  - INJURY [None]
  - MULTIPLE FRACTURES [None]
  - OVERWEIGHT [None]
  - PAIN [None]
  - TREMOR [None]
